FAERS Safety Report 8414750-3 (Version None)
Quarter: 2012Q2

REPORT INFORMATION
  Report Type: 
  Country: None (occurrence: None)
  Receive Date: 20120606
  Receipt Date: 20120603
  Transmission Date: 20120825
  Serious: Yes (Other)
  Sender: FDA-Public Use
  Company Number: US-AMGEN-USASP2012034615

PATIENT
  Sex: Female

DRUGS (2)
  1. FULVESTRANT [Concomitant]
     Indication: BREAST CANCER METASTATIC
  2. XGEVA [Suspect]
     Indication: BREAST CANCER METASTATIC

REACTIONS (2)
  - DYSPNOEA [None]
  - PLEURAL EFFUSION [None]
